FAERS Safety Report 11328825 (Version 1)
Quarter: 2015Q3

REPORT INFORMATION
  Report Type: Spontaneous
  Country: FR (occurrence: FR)
  Receive Date: 20150731
  Receipt Date: 20150731
  Transmission Date: 20151125
  Serious: Yes (Life-Threatening, Other)
  Sender: FDA-Public Use
  Company Number: FR-BRISTOL-MYERS SQUIBB COMPANY-BMS-2015-048871

PATIENT
  Age: 41 Year
  Sex: Female

DRUGS (11)
  1. ETOPOPHOS [Suspect]
     Active Substance: ETOPOSIDE PHOSPHATE
     Indication: COLORECTAL CANCER METASTATIC
     Dosage: 123 MG, QCYCLE
     Route: 042
     Dates: start: 20150508, end: 20150602
  2. ENDOXAN                            /00021101/ [Suspect]
     Active Substance: CYCLOPHOSPHAMIDE
     Indication: COLORECTAL CANCER METASTATIC
     Dosage: 925 MG, UNK
     Route: 042
     Dates: start: 20150508
  3. EMEND [Concomitant]
     Active Substance: APREPITANT
     Indication: PREMEDICATION
     Dosage: 125 MG, UNK
     Route: 048
     Dates: start: 20150507, end: 20150603
  4. CISPLATINE MYLAN [Suspect]
     Active Substance: CISPLATIN
     Indication: COLORECTAL CANCER METASTATIC
     Dosage: 92.5 MG, QCYCLE
     Route: 042
     Dates: start: 20150507, end: 20150601
  5. LEVOTHYROX [Concomitant]
     Active Substance: LEVOTHYROXINE
     Indication: PRODUCT USED FOR UNKNOWN INDICATION
     Dosage: 175 ?G, UNK
     Route: 065
  6. DOXORUBICINE ACCORD [Suspect]
     Active Substance: DOXORUBICIN
     Indication: COLORECTAL CANCER METASTATIC
     Dosage: 61.5 MG, QCYCLE
     Route: 042
     Dates: start: 20150507, end: 20150601
  7. ONDANSETRON ACCORD [Concomitant]
     Active Substance: ONDANSETRON
     Indication: PREMEDICATION
     Dosage: 8 MG, UNK
     Route: 042
     Dates: start: 20150507, end: 20150601
  8. METHYLPREDNISOLONE MYLAN           /00049602/ [Concomitant]
     Active Substance: METHYLPREDNISOLONE SODIUM SUCCINATE
     Indication: PREMEDICATION
     Dosage: 60 MG, UNK
     Route: 042
     Dates: start: 20150507, end: 20150601
  9. TOPALGIC LP [Concomitant]
     Active Substance: TRAMADOL
     Indication: PRODUCT USED FOR UNKNOWN INDICATION
     Dosage: 50 MG, UNK
     Route: 065
  10. INEXIUM                            /01479302/ [Concomitant]
     Active Substance: ESOMEPRAZOLE MAGNESIUM
     Indication: PRODUCT USED FOR UNKNOWN INDICATION
     Route: 065
  11. ETOPOSIDE MYLAN [Suspect]
     Active Substance: ETOPOSIDE
     Indication: COLORECTAL CANCER METASTATIC
     Dosage: 925 MG, QCYCLE
     Route: 042
     Dates: start: 20150508, end: 20150602

REACTIONS (3)
  - Aplasia [Recovered/Resolved]
  - Pyrexia [Recovered/Resolved]
  - Febrile bone marrow aplasia [Recovered/Resolved]

NARRATIVE: CASE EVENT DATE: 20150516
